FAERS Safety Report 6545571-4 (Version None)
Quarter: 2010Q1

REPORT INFORMATION
  Report Type: 
  Country: None (occurrence: None)
  Receive Date: 20100121
  Receipt Date: 20100111
  Transmission Date: 20100710
  Serious: Yes (Hospitalization, Other)
  Sender: FDA-Public Use
  Company Number: US-BAXTER-2009BH019460

PATIENT
  Age: 73 Year
  Sex: Female
  Weight: 82 kg

DRUGS (4)
  1. DIANEAL [Suspect]
     Indication: PERITONEAL DIALYSIS
     Route: 033
     Dates: end: 20091207
  2. DIANEAL [Suspect]
     Indication: RENAL FAILURE
     Route: 033
     Dates: end: 20091207
  3. DIANEAL [Suspect]
     Indication: PERITONEAL DIALYSIS
     Route: 033
     Dates: end: 20091207
  4. DIANEAL [Suspect]
     Indication: RENAL FAILURE
     Route: 033
     Dates: end: 20091207

REACTIONS (7)
  - CARDIAC DISORDER [None]
  - CARDIAC FAILURE CONGESTIVE [None]
  - DYSPNOEA [None]
  - FLUID OVERLOAD [None]
  - MEDICAL DEVICE COMPLICATION [None]
  - PERITONEAL DIALYSIS COMPLICATION [None]
  - RESPIRATORY DISORDER [None]
